FAERS Safety Report 10874913 (Version 1)
Quarter: 2015Q1

REPORT INFORMATION
  Report Type: Report from Study
  Country: US (occurrence: US)
  Receive Date: 20150227
  Receipt Date: 20150227
  Transmission Date: 20150721
  Serious: Yes (Other)
  Sender: FDA-Public Use
  Company Number: US-CELGENE-163-C5013-14072135

PATIENT
  Age: 71 Year
  Sex: Male
  Weight: 70.55 kg

DRUGS (18)
  1. CHOLECALCIFEROL [Concomitant]
     Active Substance: CHOLECALCIFEROL
     Indication: PROPHYLAXIS
     Dosage: 2000 UNITS
     Route: 048
     Dates: start: 20140311
  2. TAMSULOSIN [Concomitant]
     Active Substance: TAMSULOSIN
     Indication: BENIGN PROSTATIC HYPERPLASIA
     Dosage: .4 MILLIGRAM
     Route: 048
     Dates: start: 20120121
  3. DOCUSATE SODIUM. [Concomitant]
     Active Substance: DOCUSATE SODIUM
     Indication: CONSTIPATION PROPHYLAXIS
     Route: 048
     Dates: start: 20140730
  4. CC-5013 [Suspect]
     Active Substance: LENALIDOMIDE
     Route: 048
     Dates: start: 20130709, end: 20130718
  5. BISACODYL. [Concomitant]
     Active Substance: BISACODYL
     Indication: COLONOSCOPY
     Route: 048
     Dates: start: 20140724, end: 20140724
  6. HYDROCODONE/APAP [Concomitant]
     Active Substance: ACETAMINOPHEN\HYDROCODONE
     Indication: PAIN
     Dosage: 5/325
     Route: 048
     Dates: start: 20140730
  7. BUDESONIDE FORMOTEROL [Concomitant]
     Active Substance: BUDESONIDE
     Indication: CHRONIC OBSTRUCTIVE PULMONARY DISEASE
     Dosage: 160/4.5 MCG
     Route: 055
     Dates: start: 20140404, end: 20140707
  8. ALBUTEROL IPRATROPIUM [Concomitant]
     Indication: CHRONIC OBSTRUCTIVE PULMONARY DISEASE
     Dosage: 3/.5 MG
     Route: 065
     Dates: start: 20140708
  9. FOLIC ACID. [Concomitant]
     Active Substance: FOLIC ACID
     Indication: PROPHYLAXIS
     Dosage: 1 MILLIGRAM
     Route: 048
     Dates: start: 20131104
  10. ALBUTEROL. [Concomitant]
     Active Substance: ALBUTEROL
     Indication: CHRONIC OBSTRUCTIVE PULMONARY DISEASE
     Dosage: 100/20 MCG
     Route: 055
     Dates: start: 20140707
  11. CAPECITABINE. [Concomitant]
     Active Substance: CAPECITABINE
     Dosage: 520-550 MG/M2
     Route: 065
     Dates: end: 20150202
  12. ELECTROLYTES/PEG-3350 [Concomitant]
     Indication: COLONOSCOPY
     Route: 048
     Dates: start: 20140709, end: 20140710
  13. ASPIRIN. [Concomitant]
     Active Substance: ASPIRIN
     Indication: CARDIOVASCULAR EVENT PROPHYLAXIS
     Dosage: 81 MILLIGRAM
     Route: 048
     Dates: start: 20121129
  14. METRONIDAZOLE. [Concomitant]
     Active Substance: METRONIDAZOLE
     Indication: PREMEDICATION
     Route: 048
     Dates: start: 20140724, end: 20140724
  15. CC-5013 [Suspect]
     Active Substance: LENALIDOMIDE
     Indication: CHRONIC LYMPHOCYTIC LEUKAEMIA
     Route: 048
     Dates: start: 20120806
  16. SIMVASTATIN. [Concomitant]
     Active Substance: SIMVASTATIN
     Indication: HYPERCHOLESTEROLAEMIA
     Dosage: 10 MILLIGRAM
     Route: 048
     Dates: start: 20121228
  17. ERYTHROMYCIN. [Concomitant]
     Active Substance: ERYTHROMYCIN
     Indication: PREMEDICATION
     Route: 048
     Dates: start: 20140724, end: 20140724
  18. MILK OF MAGNESIA [Concomitant]
     Active Substance: MAGNESIUM HYDROXIDE
     Indication: PREMEDICATION
     Route: 048
     Dates: start: 20140723, end: 20140724

REACTIONS (1)
  - Adenocarcinoma of colon [Recovered/Resolved with Sequelae]

NARRATIVE: CASE EVENT DATE: 20140711
